FAERS Safety Report 12286000 (Version 3)
Quarter: 2016Q2

REPORT INFORMATION
  Report Type: Report from Study
  Country: US (occurrence: US)
  Receive Date: 20160420
  Receipt Date: 20160509
  Transmission Date: 20160815
  Serious: Yes (Life-Threatening, Other)
  Sender: FDA-Public Use
  Company Number: US-009507513-1604USA009905

PATIENT

DRUGS (3)
  1. KYPROLIS [Suspect]
     Active Substance: CARFILZOMIB
     Dosage: 27 MG/M2 ON DAY 8 OF CYCLE 1 AND THEREAFTER AS A 30 MINUTE INFUSION
  2. ZOLINZA [Suspect]
     Active Substance: VORINOSTAT
     Indication: B-CELL LYMPHOMA
     Dosage: 200 MG, BID,ORALLY ON DAYS 1,2,3,8,9,10,15,16 AND 17
     Route: 048
  3. KYPROLIS [Suspect]
     Active Substance: CARFILZOMIB
     Indication: B-CELL LYMPHOMA
     Dosage: 20 MG/M2 FOR DAYS 1 AND 2 OF CYCLE 1 ONLY AS A 30 MINUTE INFUSION

REACTIONS (10)
  - Lymphocyte count decreased [Unknown]
  - Hypokalaemia [Unknown]
  - Pneumonitis [Unknown]
  - Febrile neutropenia [Unknown]
  - Hyponatraemia [Unknown]
  - Platelet count decreased [Unknown]
  - Neutrophil count decreased [Unknown]
  - Dyspnoea [Unknown]
  - Anaemia [Unknown]
  - White blood cell count decreased [Unknown]
